FAERS Safety Report 14154516 (Version 4)
Quarter: 2019Q1

REPORT INFORMATION
  Report Type: Spontaneous
  Country: US (occurrence: US)
  Receive Date: 20171102
  Receipt Date: 20190305
  Transmission Date: 20190417
  Serious: Yes (Other)
  Sender: FDA-Public Use
  Company Number: US-BIOMARINAP-US-2017-115948

PATIENT
  Age: 1 Year
  Sex: Female

DRUGS (1)
  1. ALDURAZYME [Suspect]
     Active Substance: LARONIDASE
     Indication: MUCOPOLYSACCHARIDOSIS I
     Dosage: UNK
     Route: 041
     Dates: start: 20170314

REACTIONS (4)
  - Carpal tunnel decompression [Unknown]
  - Transplant [Recovering/Resolving]
  - Feeding disorder [Unknown]
  - Feeding tube user [Unknown]

NARRATIVE: CASE EVENT DATE: 20170315
